FAERS Safety Report 7081250-5 (Version None)
Quarter: 2010Q4

REPORT INFORMATION
  Report Type: 
  Country: None (occurrence: None)
  Receive Date: 20101025
  Receipt Date: 20101008
  Transmission Date: 20110411
  Serious: Yes (Other)
  Sender: FDA-Public Use
  Company Number: AUR-APL-2010-02512

PATIENT
  Age: 55 Year
  Sex: Male

DRUGS (8)
  1. RISPERIDONE [Suspect]
     Indication: PSYCHOTIC DISORDER
  2. CLOZAPINE [Suspect]
     Dosage: 75-450MG - DAILY
  3. FLUPENTHIXOL [Concomitant]
  4. DECANOATE [Concomitant]
  5. HALOPERIDOL DECANOATE [Concomitant]
  6. OLANZAPINE [Concomitant]
  7. ZUCLOPENTHIXOL DECANOATE [Concomitant]
  8. VALPROATE SODIUM [Concomitant]

REACTIONS (10)
  - DRUG INEFFECTIVE [None]
  - DYSARTHRIA [None]
  - DYSKINESIA [None]
  - DYSPHEMIA [None]
  - ERUCTATION [None]
  - HICCUPS [None]
  - HYPERKINESIA [None]
  - MENTAL STATUS CHANGES [None]
  - TIC [None]
  - TREATMENT NONCOMPLIANCE [None]
